FAERS Safety Report 7740162-1 (Version None)
Quarter: 2011Q3

REPORT INFORMATION
  Report Type: 
  Country: None (occurrence: None)
  Receive Date: 20110909
  Receipt Date: 20110902
  Transmission Date: 20111222
  Serious: Yes (Life-Threatening, Other)
  Sender: FDA-Public Use
  Company Number: JP-ROCHE-786169

PATIENT
  Sex: Male
  Weight: 74 kg

DRUGS (15)
  1. ALOXI [Concomitant]
     Route: 041
     Dates: start: 20110531, end: 20110531
  2. DECADRON [Concomitant]
     Route: 041
     Dates: start: 20110531, end: 20110531
  3. RANITIDINE [Concomitant]
     Route: 042
     Dates: start: 20110531, end: 20110531
  4. AVASTIN [Suspect]
     Indication: LUNG ADENOCARCINOMA METASTATIC
     Route: 041
     Dates: start: 20110531, end: 20110531
  5. CARBOPLATIN [Suspect]
     Indication: LUNG ADENOCARCINOMA METASTATIC
     Route: 041
     Dates: start: 20110531, end: 20110531
  6. EMEND [Concomitant]
     Route: 048
     Dates: start: 20110531, end: 20110531
  7. BEZATOL SR [Concomitant]
     Route: 048
     Dates: start: 20060101
  8. NIVADIL [Concomitant]
     Route: 048
     Dates: start: 20060101
  9. POLARAMINE [Concomitant]
     Route: 042
     Dates: start: 20110531, end: 20110531
  10. EMEND [Concomitant]
     Route: 048
     Dates: start: 20110601, end: 20110602
  11. PACLITAXEL [Suspect]
     Indication: LUNG ADENOCARCINOMA METASTATIC
     Route: 041
     Dates: start: 20110531, end: 20110531
  12. PRAVASTATIN SODIUM [Concomitant]
     Route: 048
     Dates: start: 20060101
  13. HOKUNALIN [Concomitant]
     Dosage: FORM: TAPE
     Route: 003
     Dates: start: 20110513, end: 20110615
  14. RESPLEN [Concomitant]
     Route: 048
     Dates: start: 20110510
  15. OLMESARTAN MEDOXOMIL [Concomitant]
     Route: 048
     Dates: start: 20060101

REACTIONS (7)
  - URINE OUTPUT DECREASED [None]
  - INTERSTITIAL LUNG DISEASE [None]
  - LUNG DISORDER [None]
  - FUNGAL INFECTION [None]
  - NAUSEA [None]
  - PNEUMONIA BACTERIAL [None]
  - NEUROPATHY PERIPHERAL [None]
